FAERS Safety Report 10095311 (Version 2)
Quarter: 2014Q2

REPORT INFORMATION
  Report Type: Spontaneous
  Country: US (occurrence: US)
  Receive Date: 20140422
  Receipt Date: 20140422
  Transmission Date: 20141212
  Serious: No
  Sender: FDA-Public Use
  Company Number: US-GILEAD-2013-0073891

PATIENT
  Sex: Female

DRUGS (3)
  1. LETAIRIS [Suspect]
     Indication: PRODUCT USED FOR UNKNOWN INDICATION
     Dosage: 5 MG, QD
     Dates: start: 20121208
  2. LETAIRIS [Suspect]
     Dosage: 10 MG, QD
     Dates: start: 20121207
  3. TYVASO [Concomitant]
     Indication: PRODUCT USED FOR UNKNOWN INDICATION

REACTIONS (8)
  - Oxygen supplementation [Unknown]
  - Insomnia [Unknown]
  - Pain in extremity [Unknown]
  - Muscle spasms [Unknown]
  - Dyspnoea [Unknown]
  - Dizziness [Unknown]
  - Fatigue [Recovering/Resolving]
  - Headache [Recovering/Resolving]
